FAERS Safety Report 18760020 (Version 2)
Quarter: 2021Q2

REPORT INFORMATION
  Report Type: Spontaneous
  Country: US (occurrence: US)
  Receive Date: 20210120
  Receipt Date: 20210526
  Transmission Date: 20210717
  Serious: Yes (Hospitalization, Other)
  Sender: FDA-Public Use
  Company Number: US-DRREDDYS-USA/USA/21/0131036

PATIENT
  Age: 69 Year
  Sex: Male

DRUGS (2)
  1. IBUPROFEN. [Suspect]
     Active Substance: IBUPROFEN
     Indication: ARTHRALGIA
     Dosage: DAILY IBUPROFEN USE (1200?1800MG/D) FOR 3 MONTHS
  2. IBUPROFEN. [Suspect]
     Active Substance: IBUPROFEN
     Dosage: DAILY IBUPROFEN USE (1200?1800MG/D) FOR 3 MONTHS

REACTIONS (4)
  - Lymphocytic infiltration [Recovering/Resolving]
  - Glomerulonephritis minimal lesion [Recovering/Resolving]
  - Tubulointerstitial nephritis [Recovering/Resolving]
  - Nephropathy toxic [Recovering/Resolving]
